FAERS Safety Report 8606026 (Version 2)
Quarter: 2012Q4

REPORT INFORMATION
  Report Type: 
  Country: US (occurrence: US)
  Receive Date: 20120608
  Receipt Date: 20121004
  Transmission Date: 20130627
  Serious: No
  Sender: FDA-Public Use
  Company Number: US-ASTRAZENECA-2011SE54944

PATIENT
  Age: 65 Year
  Sex: Female

DRUGS (4)
  1. ATACAND [Suspect]
     Route: 048
  2. NEXIUM [Suspect]
     Route: 048
  3. CRESTOR [Suspect]
     Route: 048
  4. NAPROSYN [Suspect]
     Route: 065

REACTIONS (5)
  - Asthma [Unknown]
  - Bone pain [Unknown]
  - Arthritis [Unknown]
  - Cough [Unknown]
  - Ulcer [Unknown]
